FAERS Safety Report 8591752-8 (Version None)
Quarter: 2012Q3

REPORT INFORMATION
  Report Type: 
  Country: None (occurrence: None)
  Receive Date: 20120814
  Receipt Date: 20120809
  Transmission Date: 20120928
  Serious: Yes (Hospitalization)
  Sender: FDA-Public Use
  Company Number: PHHY2012CO021039

PATIENT
  Sex: Female

DRUGS (2)
  1. EXJADE [Suspect]
     Dosage: UNK UKN, UNK
     Route: 048
     Dates: start: 20090101
  2. EXJADE [Suspect]
     Dosage: 400 MG, UNK
     Route: 048
     Dates: start: 20120413

REACTIONS (4)
  - DIARRHOEA [None]
  - DRUG ADMINISTRATION ERROR [None]
  - SICKLE CELL ANAEMIA WITH CRISIS [None]
  - PNEUMONIA [None]
